FAERS Safety Report 4495575-0 (Version None)
Quarter: 2004Q4

REPORT INFORMATION
  Report Type: 
  Country: None (occurrence: None)
  Receive Date: 20041108
  Receipt Date: 20041027
  Transmission Date: 20050328
  Serious: Yes (Hospitalization)
  Sender: FDA-Public Use
  Company Number: US-ROCHE-384827

PATIENT
  Age: 65 Year
  Sex: Male
  Weight: 87.2 kg

DRUGS (11)
  1. CAPECITABINE [Suspect]
     Indication: BLADDER CANCER
     Dosage: D 5 TO 18
     Route: 048
     Dates: start: 20040807
  2. TAXOTERE [Suspect]
     Indication: BLADDER CANCER
     Dosage: D 1, 8, 15
     Route: 042
     Dates: start: 20040802, end: 20040913
  3. SYNTHROID [Concomitant]
  4. ZOLOFT [Concomitant]
  5. LASIX [Concomitant]
  6. SODIUM CHLORIDE INJ [Concomitant]
  7. COMPAZINE [Concomitant]
  8. DEXAMETHASONE [Concomitant]
  9. BENADRYL [Concomitant]
  10. SLEEPING PILLS [Concomitant]
  11. PREVACID [Concomitant]

REACTIONS (22)
  - BACTERIAL INFECTION [None]
  - CANDIDIASIS [None]
  - CRYPTOGENIC ORGANIZING PNEUMONIA [None]
  - DECREASED APPETITE [None]
  - DIARRHOEA [None]
  - DIZZINESS [None]
  - ELECTROCARDIOGRAM POOR R-WAVE PROGRESSION [None]
  - EMBOLISM [None]
  - HEADACHE [None]
  - HYPOXIA [None]
  - INFECTION [None]
  - METASTASES TO LUNG [None]
  - OEDEMA PERIPHERAL [None]
  - ORTHOSTATIC HYPOTENSION [None]
  - PALLOR [None]
  - PARAESTHESIA [None]
  - PHLEBOTHROMBOSIS [None]
  - PLEURAL EFFUSION [None]
  - PNEUMONIA [None]
  - PNEUMONITIS [None]
  - PULMONARY OEDEMA [None]
  - WEIGHT INCREASED [None]
